FAERS Safety Report 7533793 (Version 2)
Quarter: 2012Q4

REPORT INFORMATION
  Report Type: 
  Country: CA (occurrence: CA)
  Receive Date: 20060221
  Receipt Date: 20121109
  Transmission Date: 20130627
  Serious: Yes (Hospitalization, Other)
  Sender: FDA-Public Use
  Company Number: PHHO2005CA15495

PATIENT
  Sex: Female

DRUGS (2)
  1. SANDOSTATIN LAR [Suspect]
     Indication: ACROMEGALY
     Dosage: 20 mg, QMO
     Dates: start: 20010120
  2. CORTEF [Concomitant]

REACTIONS (9)
  - Gastrooesophageal reflux disease [Recovered/Resolved]
  - Chest pain [Recovered/Resolved]
  - Hypoaesthesia [Unknown]
  - Blood pressure increased [Unknown]
  - Tremor [Unknown]
  - Bone pain [Unknown]
  - Muscle spasms [Unknown]
  - Hypoglycaemia [Unknown]
  - Abdominal pain [Unknown]
